FAERS Safety Report 12629632 (Version 1)
Quarter: 2016Q3

REPORT INFORMATION
  Report Type: Spontaneous
  Country: FR (occurrence: FR)
  Receive Date: 20160808
  Receipt Date: 20160808
  Transmission Date: 20161109
  Serious: Yes (Hospitalization, Other)
  Sender: FDA-Public Use
  Company Number: FR-GLAXOSMITHKLINE-FR2016GSK113509

PATIENT
  Age: 60 Year
  Sex: Female

DRUGS (8)
  1. SEROPLEX [Concomitant]
     Active Substance: ESCITALOPRAM OXALATE
  2. BIPROFENID [Suspect]
     Active Substance: KETOPROFEN
     Indication: OSTEOARTHRITIS
     Dosage: 100 MG, Z
     Route: 048
     Dates: start: 20160520, end: 20160619
  3. BIPROFENID [Suspect]
     Active Substance: KETOPROFEN
     Dosage: 200 MG, QD
     Dates: start: 20160609
  4. COVERSYL [Suspect]
     Active Substance: PERINDOPRIL
     Indication: ESSENTIAL HYPERTENSION
     Dosage: 2 MG, QD
     Route: 048
     Dates: end: 20160625
  5. VOLTARENE [Suspect]
     Active Substance: DICLOFENAC SODIUM
     Indication: OSTEOARTHRITIS
     Dosage: 1 DF, QD
     Route: 003
     Dates: start: 20160520, end: 20160619
  6. FLUDEX (INDAPAMIDE) 1.5MG [Suspect]
     Active Substance: INDAPAMIDE
     Indication: HYPERTENSION
     Dosage: 1.5 MG, QD
     Route: 048
     Dates: end: 20160625
  7. METFORMIN [Concomitant]
     Active Substance: METFORMIN HYDROCHLORIDE
  8. DONEPEZIL. [Concomitant]
     Active Substance: DONEPEZIL

REACTIONS (3)
  - Acute kidney injury [Recovered/Resolved]
  - Vomiting [None]
  - Dehydration [None]

NARRATIVE: CASE EVENT DATE: 20160619
